FAERS Safety Report 12256691 (Version 1)
Quarter: 2016Q2

REPORT INFORMATION
  Report Type: Spontaneous
  Country: IT (occurrence: IT)
  Receive Date: 20160412
  Receipt Date: 20160412
  Transmission Date: 20160815
  Serious: Yes (Hospitalization)
  Sender: FDA-Public Use
  Company Number: IT-CELGENEUS-ITA-2016037799

PATIENT
  Age: 53 Year
  Sex: Female

DRUGS (7)
  1. ONDANSETRON [Concomitant]
     Active Substance: ONDANSETRON
     Indication: PREMEDICATION
     Dosage: IN 100 CC OF PHYSIOLOGIC SOLUTION
     Route: 041
  2. GEMCITABINE [Concomitant]
     Active Substance: GEMCITABINE\GEMCITABINE HYDROCHLORIDE
     Indication: PANCREATIC CARCINOMA
     Route: 065
  3. RANITIDINE. [Concomitant]
     Active Substance: RANITIDINE
     Indication: PREMEDICATION
     Route: 041
  4. ABRAXANE [Suspect]
     Active Substance: PACLITAXEL
     Indication: PANCREATIC CARCINOMA
     Route: 041
  5. SOLDESAM [Concomitant]
     Active Substance: DEXAMETHASONE
     Indication: PREMEDICATION
     Dosage: IN 100 CC OF PHYSIOLOGIC SOLUTION
     Route: 041
  6. SOLDESAM [Concomitant]
     Active Substance: DEXAMETHASONE
     Dosage: IN 100 CC OF PHYSIOLOGIC SOLUTION
     Route: 041
  7. ONDANSETRON [Concomitant]
     Active Substance: ONDANSETRON
     Dosage: IN 100 CC OF PHYSIOLOGIC SOLUTION
     Route: 041

REACTIONS (6)
  - Generalised erythema [Recovered/Resolved]
  - Cardiac arrest [Recovered/Resolved]
  - Throat tightness [Recovered/Resolved]
  - Hypotension [Recovered/Resolved]
  - Oedema genital [Recovered/Resolved]
  - Loss of consciousness [Recovered/Resolved]
